FAERS Safety Report 6213134-6 (Version None)
Quarter: 2009Q2

REPORT INFORMATION
  Report Type: 
  Country: None (occurrence: None)
  Receive Date: 20090601
  Receipt Date: 20090601
  Transmission Date: 20091009
  Serious: Yes (Hospitalization)
  Sender: FDA-Public Use
  Company Number: None

PATIENT
  Age: 58 Year
  Sex: Male

DRUGS (1)
  1. ABCIXIMAB [Suspect]
     Indication: CAROTID ARTERY STENT INSERTION
     Dosage: 2 MG OTHER IV
     Route: 042
     Dates: start: 20090227, end: 20090228

REACTIONS (1)
  - THROMBOCYTOPENIA [None]
